FAERS Safety Report 9292116 (Version 1)
Quarter: 2013Q2

REPORT INFORMATION
  Report Type: Report from Study
  Country: AR (occurrence: AR)
  Receive Date: 20130516
  Receipt Date: 20130516
  Transmission Date: 20140414
  Serious: Yes (Other)
  Sender: FDA-Public Use
  Company Number: AR-ROCHE-1222798

PATIENT
  Age: 74 Year
  Sex: Female

DRUGS (2)
  1. LUCENTIS [Suspect]
     Indication: EYE PAIN
     Route: 050
     Dates: start: 201303
  2. LUCENTIS [Suspect]
     Indication: OFF LABEL USE

REACTIONS (2)
  - Blindness [Unknown]
  - Eye injury [Unknown]
